FAERS Safety Report 5396201-9 (Version None)
Quarter: 2007Q3

REPORT INFORMATION
  Report Type: 
  Country: None (occurrence: None)
  Receive Date: 20070725
  Receipt Date: 20070718
  Transmission Date: 20080115
  Serious: Yes (Other)
  Sender: FDA-Public Use
  Company Number: PHBS2007ZA12103

PATIENT
  Age: 58 Year
  Sex: Male

DRUGS (2)
  1. TAREG [Suspect]
     Dosage: 160 MG/DAY
     Route: 048
  2. ZETOMAX [Concomitant]

REACTIONS (1)
  - PNEUMONIA [None]
